FAERS Safety Report 13462038 (Version 1)
Quarter: 2017Q2

REPORT INFORMATION
  Report Type: Spontaneous
  Country: US (occurrence: US)
  Receive Date: 20170420
  Receipt Date: 20170420
  Transmission Date: 20170830
  Serious: Yes (Hospitalization, Disabling)
  Sender: FDA-Public Use
  Company Number: None

PATIENT
  Age: 24 Month
  Sex: Female
  Weight: 59.4 kg

DRUGS (5)
  1. TOPAMAX [Concomitant]
     Active Substance: TOPIRAMATE
  2. ABILIFY [Suspect]
     Active Substance: ARIPIPRAZOLE
     Indication: POST-TRAUMATIC STRESS DISORDER
     Dosage: ?          QUANTITY:30 TABLET(S);OTHER ROUTE:MOUTH?
     Route: 048
     Dates: end: 20161101
  3. TRAZODONE [Concomitant]
     Active Substance: TRAZODONE HYDROCHLORIDE
  4. KLONIPIN [Concomitant]
     Active Substance: CLONAZEPAM
  5. ABILIFY [Suspect]
     Active Substance: ARIPIPRAZOLE
     Indication: SEXUAL ABUSE
     Dosage: ?          QUANTITY:30 TABLET(S);OTHER ROUTE:MOUTH?
     Route: 048
     Dates: end: 20161101

REACTIONS (13)
  - Gait disturbance [None]
  - Muscle tone disorder [None]
  - Confusional state [None]
  - Disturbance in attention [None]
  - Anxiety [None]
  - Formication [None]
  - Malaise [None]
  - Mental impairment [None]
  - Palpitations [None]
  - Dizziness [None]
  - Fatigue [None]
  - Akathisia [None]
  - Mydriasis [None]

NARRATIVE: CASE EVENT DATE: 20170413
